FAERS Safety Report 21238568 (Version 1)
Quarter: 2022Q3

REPORT INFORMATION
  Report Type: Spontaneous
  Country: ES (occurrence: ES)
  Receive Date: 20220822
  Receipt Date: 20220822
  Transmission Date: 20221027
  Serious: Yes (Hospitalization, Other)
  Sender: FDA-Public Use
  Company Number: None

PATIENT
  Age: 52 Year
  Sex: Female

DRUGS (5)
  1. CARBOPLATIN [Suspect]
     Active Substance: CARBOPLATIN
     Indication: Cervix neoplasm
     Dosage: 460 MG, CYCLIC (160 MG C/21 DAYS)
     Route: 042
     Dates: start: 20200521
  2. LORMETAZEPAM [Concomitant]
     Active Substance: LORMETAZEPAM
     Indication: Anxiety
     Dosage: 2 MG, DAILY (2.0 MG C/24H NOC)
     Route: 048
     Dates: start: 20210423
  3. PROLIA [Concomitant]
     Active Substance: DENOSUMAB
     Indication: Osteoporosis
     Dosage: 60 MG, UNK
     Route: 058
     Dates: start: 20210424
  4. PREMAX [PREGABALIN] [Concomitant]
     Indication: Psychotic disorder
     Dosage: 150 MG (150 MG DECOMECE)
     Route: 048
     Dates: start: 20210412
  5. POTASSIUM CHLORIDE [Concomitant]
     Active Substance: POTASSIUM CHLORIDE
     Indication: Hypokalaemia
     Dosage: 16 MEQ (16 MEQ DECE)
     Route: 048
     Dates: start: 20200805

REACTIONS (2)
  - Hypokalaemia [Recovered/Resolved]
  - Febrile neutropenia [Recovered/Resolved]

NARRATIVE: CASE EVENT DATE: 20210803
